FAERS Safety Report 20016141 (Version 1)
Quarter: 2021Q4

REPORT INFORMATION
  Report Type: Spontaneous
  Country: US (occurrence: None)
  Receive Date: 20211102
  Receipt Date: 20211102
  Transmission Date: 20220303
  Serious: No
  Sender: FDA-Public Use
  Company Number: None

PATIENT

DRUGS (2)
  1. BAMLANIVIMAB [Suspect]
     Active Substance: BAMLANIVIMAB
  2. BENLYSTA [Suspect]
     Active Substance: BELIMUMAB

REACTIONS (4)
  - Product appearance confusion [None]
  - Product name confusion [None]
  - Wrong product administered [None]
  - Transcription medication error [None]
